FAERS Safety Report 21559662 (Version 6)
Quarter: 2022Q4

REPORT INFORMATION
  Report Type: Spontaneous
  Country: CO (occurrence: CO)
  Receive Date: 20221107
  Receipt Date: 20221222
  Transmission Date: 20230113
  Serious: No
  Sender: FDA-Public Use
  Company Number: CO-PFIZER INC-PV202200085874

PATIENT
  Sex: Male

DRUGS (1)
  1. GENOTROPIN [Suspect]
     Active Substance: SOMATROPIN
     Dosage: 1.8 MG
     Route: 058
     Dates: start: 202112

REACTIONS (6)
  - Drug dose omission by device [Unknown]
  - Device failure [Unknown]
  - Device malfunction [Unknown]
  - Device information output issue [Unknown]
  - Device occlusion [Unknown]
  - Device issue [Unknown]
